FAERS Safety Report 6647637-7 (Version None)
Quarter: 2010Q1

REPORT INFORMATION
  Report Type: 
  Country: None (occurrence: None)
  Receive Date: 20100323
  Receipt Date: 20100323
  Transmission Date: 20100710
  Serious: Yes (Other)
  Sender: FDA-Public Use
  Company Number: None

PATIENT
  Sex: Male
  Weight: 77.5651 kg

DRUGS (2)
  1. AMLODIPINE [Suspect]
     Indication: CORONARY ARTERY DISEASE
     Dosage: 10 MG
     Dates: start: 20090212
  2. AMLODIPINE [Suspect]
     Indication: HYPERTENSION
     Dosage: 10 MG
     Dates: start: 20090212

REACTIONS (1)
  - PRURITUS [None]
